FAERS Safety Report 5691671-0 (Version None)
Quarter: 2008Q2

REPORT INFORMATION
  Report Type: 
  Country: None (occurrence: None)
  Receive Date: 20080402
  Receipt Date: 20060810
  Transmission Date: 20081010
  Serious: Yes (Death, Other)
  Sender: FDA-Public Use
  Company Number: US-ROCHE-459330

PATIENT
  Age: 46 Year
  Sex: Female

DRUGS (10)
  1. PEGASYS [Suspect]
     Indication: HEPATITIS C VIRUS
     Route: 058
     Dates: start: 20060703, end: 20060724
  2. COPEGUS [Suspect]
     Indication: HEPATITIS C VIRUS
     Dosage: DOSING AMOUNTS REPORTED AS: 3 TABLETS, BID.
     Route: 048
     Dates: start: 20060703
  3. OXYCODONE HCL [Suspect]
     Indication: DRUG USE FOR UNKNOWN INDICATION
     Route: 065
  4. NEURONTIN [Concomitant]
     Indication: PAIN
  5. ALBUTEROL [Concomitant]
     Indication: ASTHMA
  6. XANAX [Concomitant]
     Indication: ANXIETY
  7. ZANTAC [Concomitant]
     Indication: ILL-DEFINED DISORDER
  8. SINGULAIR [Concomitant]
     Indication: ASTHMA
  9. PERCOCET [Concomitant]
     Indication: PAIN
  10. OXYCONTIN [Concomitant]
     Indication: PAIN

REACTIONS (5)
  - ATELECTASIS [None]
  - CEREBRAL ISCHAEMIA [None]
  - OVERDOSE [None]
  - PULMONARY GRANULOMA [None]
  - SHOCK [None]
